FAERS Safety Report 12144521 (Version 1)
Quarter: 2016Q1

REPORT INFORMATION
  Report Type: Spontaneous
  Country: US (occurrence: US)
  Receive Date: 20160304
  Receipt Date: 20160304
  Transmission Date: 20160526
  Serious: Yes (Death)
  Sender: FDA-Public Use
  Company Number: US-HOSPIRA-3129398

PATIENT
  Age: 36 Year
  Sex: Male

DRUGS (1)
  1. HEPARIN SODIUM. [Suspect]
     Active Substance: HEPARIN SODIUM
     Indication: DEEP VEIN THROMBOSIS
     Route: 041

REACTIONS (3)
  - Disseminated intravascular coagulation [Fatal]
  - Heparin-induced thrombocytopenia [Fatal]
  - Thrombosis [Fatal]
